FAERS Safety Report 4354889-5 (Version None)
Quarter: 2004Q2

REPORT INFORMATION
  Report Type: 
  Country: None (occurrence: None)
  Receive Date: 20040507
  Receipt Date: 20040224
  Transmission Date: 20050107
  Serious: Yes (Disabling)
  Sender: FDA-Public Use
  Company Number: US-MERCK-0402USA01798

PATIENT
  Age: 73 Year
  Sex: Male
  Weight: 82 kg

DRUGS (6)
  1. ATENOLOL [Concomitant]
     Indication: CORONARY ARTERY DISEASE
     Route: 048
  2. DILTIAZEM HYDROCHLORIDE [Concomitant]
     Indication: HYPERTENSION
     Route: 048
  3. LEVOXYL [Concomitant]
     Indication: HYPOTHYROIDISM
     Route: 048
  4. NITROGLYCERIN [Concomitant]
     Indication: CORONARY ARTERY DISEASE
     Route: 048
  5. ZOCOR [Suspect]
     Indication: BLOOD CHOLESTEROL INCREASED
     Route: 048
     Dates: start: 20010101, end: 20010101
  6. ZOCOR [Suspect]
     Route: 048
     Dates: start: 20020222

REACTIONS (4)
  - ASTHENIA [None]
  - MYALGIA [None]
  - PAIN IN EXTREMITY [None]
  - RASH [None]
